FAERS Safety Report 11624140 (Version 1)
Quarter: 2015Q4

REPORT INFORMATION
  Report Type: Spontaneous
  Country: US (occurrence: US)
  Receive Date: 20151013
  Receipt Date: 20151013
  Transmission Date: 20160304
  Serious: No
  Sender: FDA-Public Use
  Company Number: US-JNJFOC-20150906462

PATIENT
  Age: 57 Year
  Sex: Female
  Weight: 61.24 kg

DRUGS (5)
  1. WOMENS ROGAINE UNSCENTED [Suspect]
     Active Substance: MINOXIDIL
     Indication: ALOPECIA
     Dosage: TWICE THE SIZE OF A COTTON BALL, DAILY
     Route: 061
     Dates: start: 20150814
  2. WOMENS ROGAINE UNSCENTED [Suspect]
     Active Substance: MINOXIDIL
     Route: 061
  3. BIOTIN [Concomitant]
     Active Substance: BIOTIN
     Indication: GENERAL PHYSICAL CONDITION
     Dosage: {30 DAYS
     Route: 065
  4. ANTI-INFLAMMATORY, UNSPECIFIED [Concomitant]
     Indication: ARTHRITIS
     Route: 065
  5. FISH OIL [Concomitant]
     Active Substance: FISH OIL
     Indication: ROUTINE HEALTH MAINTENANCE
     Dosage: 2-3 MONTHS
     Route: 065

REACTIONS (5)
  - Product quality issue [Unknown]
  - Hair disorder [Not Recovered/Not Resolved]
  - Incorrect dose administered [Not Recovered/Not Resolved]
  - Pruritus [Not Recovered/Not Resolved]
  - Product physical consistency issue [Unknown]
